FAERS Safety Report 7247120-4 (Version None)
Quarter: 2011Q1

REPORT INFORMATION
  Report Type: 
  Country: None (occurrence: None)
  Receive Date: 20110127
  Receipt Date: 20100721
  Transmission Date: 20110831
  Serious: No
  Sender: FDA-Public Use
  Company Number: US-BAUSCH-2010BL003937

PATIENT
  Age: 81 Year
  Sex: Female
  Weight: 61 kg

DRUGS (9)
  1. ALAWAY [Suspect]
     Indication: LACRIMATION INCREASED
     Route: 047
     Dates: start: 20100715, end: 20100715
  2. ALAWAY [Suspect]
     Route: 047
     Dates: start: 20100715, end: 20100719
  3. ALAWAY [Suspect]
     Route: 047
     Dates: start: 20100715, end: 20100719
  4. FLUTICASONE PROPIONATE [Suspect]
     Indication: SEASONAL ALLERGY
     Route: 045
     Dates: start: 20100715, end: 20100719
  5. SYNTHROID [Concomitant]
     Indication: HYPOTHYROIDISM
     Route: 048
  6. CLONAZEPAM [Concomitant]
     Indication: ANXIETY
     Route: 048
  7. ALAWAY [Suspect]
     Indication: EYE PRURITUS
     Route: 047
     Dates: start: 20100715, end: 20100715
  8. PLAVIX [Concomitant]
     Indication: STENT PLACEMENT
     Route: 048
  9. ASPIRIN [Concomitant]
     Indication: STENT PLACEMENT
     Route: 048

REACTIONS (5)
  - FLATULENCE [None]
  - DIARRHOEA [None]
  - VISION BLURRED [None]
  - STOMATITIS [None]
  - ABDOMINAL DISTENSION [None]
